FAERS Safety Report 6977000-0 (Version None)
Quarter: 2010Q3

REPORT INFORMATION
  Report Type: 
  Country: None (occurrence: None)
  Receive Date: 20100910
  Receipt Date: 20100906
  Transmission Date: 20110219
  Serious: Yes (Hospitalization)
  Sender: FDA-Public Use
  Company Number: DE-ROCHE-725437

PATIENT
  Sex: Female
  Weight: 47 kg

DRUGS (9)
  1. BEVACIZUMAB [Suspect]
     Indication: NON-SMALL CELL LUNG CANCER
     Dosage: FORM :INFUSION LAST DOSE PRIOR TO SAE 19 JUL 2010
     Route: 042
     Dates: start: 20100423
  2. BEVACIZUMAB [Suspect]
     Dosage: PERMANATLY DISCONTINUED
     Route: 042
     Dates: end: 20100901
  3. PEMETREXED [Suspect]
     Indication: NON-SMALL CELL LUNG CANCER
     Route: 065
  4. CARBOPLATIN [Suspect]
     Indication: NON-SMALL CELL LUNG CANCER
     Route: 065
  5. ASPIRIN [Concomitant]
     Dosage: 1DF/D
  6. BISOPROLOL [Concomitant]
     Dosage: TDD:1DF/D
  7. RAMIPRIL [Concomitant]
     Dosage: TDD:1DF/D
  8. PERENTEROL [Concomitant]
     Dosage: TDD:2XCAPSULE 4DF/D
  9. MST [Concomitant]
     Dosage: 10 MG 2DF/D

REACTIONS (3)
  - ARTERIAL OCCLUSIVE DISEASE [None]
  - GENERAL PHYSICAL HEALTH DETERIORATION [None]
  - VOMITING [None]
